FAERS Safety Report 13353635 (Version 1)
Quarter: 2017Q1

REPORT INFORMATION
  Report Type: Spontaneous
  Country: FR (occurrence: FR)
  Receive Date: 20170321
  Receipt Date: 20170321
  Transmission Date: 20170429
  Serious: Yes (Disabling)
  Sender: FDA-Public Use
  Company Number: FR-ASTRAZENECA-2017SE28678

PATIENT
  Age: 881 Month
  Sex: Male

DRUGS (3)
  1. MOPRAL [Suspect]
     Active Substance: OMEPRAZOLE SODIUM
     Indication: DUODENAL ULCER
     Route: 048
     Dates: start: 20170315
  2. MOPRAL [Suspect]
     Active Substance: OMEPRAZOLE SODIUM
     Indication: DUODENAL ULCER
     Route: 048
     Dates: start: 1998
  3. MOPRAL [Suspect]
     Active Substance: OMEPRAZOLE SODIUM
     Indication: DUODENAL ULCER
     Route: 048
     Dates: end: 20170311

REACTIONS (2)
  - Rheumatoid arthritis [Unknown]
  - Osteoarthritis [Unknown]
